FAERS Safety Report 11596906 (Version 1)
Quarter: 2015Q4

REPORT INFORMATION
  Report Type: Spontaneous
  Country: US (occurrence: None)
  Receive Date: 20151005
  Receipt Date: 20151005
  Transmission Date: 20160304
  Serious: No
  Sender: FDA-Public Use
  Company Number: None

PATIENT
  Age: 46 Year
  Sex: Male
  Weight: 74.84 kg

DRUGS (1)
  1. PENNSAID [Suspect]
     Active Substance: DICLOFENAC SODIUM
     Indication: ARTHRALGIA
     Dosage: 1 PACK 2 TIMES PER DAY?TWICE DAILY?APPLIE TO A SURFACE USUALLY THE SKIN
     Route: 061
     Dates: start: 20150930, end: 20151001

REACTIONS (4)
  - Application site warmth [None]
  - Skin disorder [None]
  - Dermatitis [None]
  - Pruritus [None]

NARRATIVE: CASE EVENT DATE: 20151001
